FAERS Safety Report 22529721 (Version 1)
Quarter: 2023Q2

REPORT INFORMATION
  Report Type: Spontaneous
  Country: US (occurrence: US)
  Receive Date: 20230607
  Receipt Date: 20230607
  Transmission Date: 20230721
  Serious: No
  Sender: FDA-Public Use
  Company Number: US-APOTEX-2022AP014787

PATIENT
  Sex: Male

DRUGS (6)
  1. FLUVOXAMINE MALEATE [Suspect]
     Active Substance: FLUVOXAMINE MALEATE
     Indication: Obsessive-compulsive disorder
     Dosage: 3 DOSAGE FORM, Q.AM
     Route: 065
     Dates: start: 2022
  2. FLUVOXAMINE MALEATE [Suspect]
     Active Substance: FLUVOXAMINE MALEATE
     Indication: Generalised anxiety disorder
  3. FLUVOXAMINE MALEATE [Suspect]
     Active Substance: FLUVOXAMINE MALEATE
     Indication: Depression
  4. FLUVOXAMINE MALEATE [Suspect]
     Active Substance: FLUVOXAMINE MALEATE
     Indication: Mental disorder
  5. LORAZEPAM [Concomitant]
     Active Substance: LORAZEPAM
     Indication: Mental disorder
     Dosage: 2 MILLIGRAM, TID
     Route: 065
  6. ZOLPIDEM [Concomitant]
     Active Substance: ZOLPIDEM TARTRATE
     Indication: Mental disorder
     Dosage: 10 MILLIGRAM, QD
     Route: 065

REACTIONS (7)
  - Suspected counterfeit product [Unknown]
  - Product tampering [Unknown]
  - Incorrect dose administered [Unknown]
  - Product appearance confusion [Unknown]
  - Anorgasmia [Recovered/Resolved]
  - Decreased appetite [Recovered/Resolved]
  - Somnolence [Recovered/Resolved]

NARRATIVE: CASE EVENT DATE: 20220101
